FAERS Safety Report 18685179 (Version 2)
Quarter: 2021Q1

REPORT INFORMATION
  Report Type: Spontaneous
  Country: US (occurrence: US)
  Receive Date: 20201231
  Receipt Date: 20210111
  Transmission Date: 20210419
  Serious: Yes (Other)
  Sender: FDA-Public Use
  Company Number: US-BEH-2020126711

PATIENT
  Age: 66 Year
  Sex: Male

DRUGS (1)
  1. HUMAN IMMUNOGLOBULIN (INN) [Suspect]
     Active Substance: HUMAN IMMUNOGLOBULIN G
     Indication: HYPOGAMMAGLOBULINAEMIA
     Dosage: UNK, QMT
     Route: 042
     Dates: start: 1995

REACTIONS (7)
  - Hepatitis B DNA assay positive [Unknown]
  - Hepatitis B surface antigen positive [Unknown]
  - Hepatitis B surface antibody positive [Unknown]
  - Acute hepatitis B [Unknown]
  - Hepatitis C [Unknown]
  - Suspected transmission of an infectious agent via product [Unknown]
  - Hepatitis B core antibody positive [Unknown]
